FAERS Safety Report 11215993 (Version 1)
Quarter: 2015Q2

REPORT INFORMATION
  Report Type: Report from Study
  Country: US (occurrence: US)
  Receive Date: 20150624
  Receipt Date: 20150624
  Transmission Date: 20150821
  Serious: Yes (Hospitalization)
  Sender: FDA-Public Use
  Company Number: US-ACTELION-A-US2015-118035

PATIENT
  Age: 53 Year
  Sex: Male

DRUGS (6)
  1. VENTAVIS [Suspect]
     Active Substance: ILOPROST
     Indication: PULMONARY ARTERIAL HYPERTENSION
     Dosage: 5 MCG, UNK
     Route: 055
     Dates: start: 20121221
  2. ALBUTEROL. [Concomitant]
     Active Substance: ALBUTEROL
  3. MUCINEX [Concomitant]
     Active Substance: GUAIFENESIN
  4. PREDNISONE. [Concomitant]
     Active Substance: PREDNISONE
  5. FUROSEMIDE. [Concomitant]
     Active Substance: FUROSEMIDE
  6. POTASSIUM [Concomitant]
     Active Substance: POTASSIUM

REACTIONS (5)
  - Headache [Recovered/Resolved]
  - Cough [Recovering/Resolving]
  - Fatigue [Recovering/Resolving]
  - Dyspnoea [Recovering/Resolving]
  - Blood potassium increased [Recovering/Resolving]

NARRATIVE: CASE EVENT DATE: 20150503
